FAERS Safety Report 25005289 (Version 1)
Quarter: 2025Q1

REPORT INFORMATION
  Report Type: Spontaneous
  Country: CN (occurrence: CN)
  Receive Date: 20250224
  Receipt Date: 20250224
  Transmission Date: 20250409
  Serious: Yes (Hospitalization)
  Sender: FRESENIUS KABI
  Company Number: CN-FreseniusKabi-FK202502977

PATIENT
  Age: 35 Year
  Sex: Male
  Weight: 85 kg

DRUGS (6)
  1. PROPOFOL [Suspect]
     Active Substance: PROPOFOL
     Indication: General anaesthesia
     Dosage: FOA: INJECTION
     Route: 042
     Dates: start: 20250108, end: 20250108
  2. ESOMEPRAZOLE SODIUM [Suspect]
     Active Substance: ESOMEPRAZOLE SODIUM
     Indication: Gastric polyps
     Dosage: FOA: POWDER FOR INJECTION
     Route: 041
     Dates: start: 20250108, end: 20250109
  3. REBAMIPIDE [Suspect]
     Active Substance: REBAMIPIDE
     Indication: Gastric polyps
     Dosage: FOA: TABLETS
     Route: 048
     Dates: start: 20250109, end: 20250111
  4. ESOMEPRAZOLE MAGNESIUM [Suspect]
     Active Substance: ESOMEPRAZOLE MAGNESIUM
     Indication: Gastric polyps
     Dosage: FOA: ENTERIC-COATED TABLETS
     Route: 048
     Dates: start: 20250109, end: 20250111
  5. PROMETHAZINE HYDROCHLORIDE [Suspect]
     Active Substance: PROMETHAZINE HYDROCHLORIDE
     Indication: Product used for unknown indication
     Dosage: FOA: GRANULE
     Route: 048
     Dates: start: 20250108, end: 20250108
  6. SODIUM CHLORIDE [Concomitant]
     Active Substance: SODIUM CHLORIDE
     Indication: Vehicle solution use
     Dosage: FOA: INJECTION
     Route: 041
     Dates: start: 20250108, end: 20250109

REACTIONS (1)
  - Drug eruption [Recovered/Resolved]

NARRATIVE: CASE EVENT DATE: 20250109
